FAERS Safety Report 19921689 (Version 4)
Quarter: 2025Q1

REPORT INFORMATION
  Report Type: Report from Study
  Country: CA (occurrence: CA)
  Receive Date: 20211005
  Receipt Date: 20250109
  Transmission Date: 20250408
  Serious: Yes (Hospitalization, Other)
  Sender: TAKEDA
  Company Number: CA-TAKEDA-2021TUS061283

PATIENT
  Age: 40 Year
  Sex: Male

DRUGS (6)
  1. VEDOLIZUMAB [Suspect]
     Active Substance: VEDOLIZUMAB
     Indication: Colitis ulcerative
  2. VEDOLIZUMAB [Suspect]
     Active Substance: VEDOLIZUMAB
     Dosage: 300 MILLIGRAM, Q4WEEKS
     Dates: start: 20211021
  3. VEDOLIZUMAB [Suspect]
     Active Substance: VEDOLIZUMAB
     Dosage: 300 MILLIGRAM, Q4WEEKS
  4. VEDOLIZUMAB [Suspect]
     Active Substance: VEDOLIZUMAB
     Indication: Colitis ulcerative
     Dosage: 108 MILLIGRAM, Q2WEEKS
     Dates: start: 20221107
  5. ASPIRIN [Concomitant]
     Active Substance: ASPIRIN
  6. CORTISONE [Concomitant]
     Active Substance: CORTISONE

REACTIONS (15)
  - Colitis ulcerative [Unknown]
  - Abdominal discomfort [Unknown]
  - Abdominal pain [Unknown]
  - Vomiting [Unknown]
  - Oropharyngeal pain [Unknown]
  - Cough [Unknown]
  - Pyrexia [Unknown]
  - Stress [Unknown]
  - Sleep apnoea syndrome [Unknown]
  - Abdominal pain lower [Unknown]
  - Asthenia [Unknown]
  - Off label use [Unknown]
  - Exercise tolerance decreased [Unknown]
  - Folliculitis [Unknown]
  - Fatigue [Unknown]

NARRATIVE: CASE EVENT DATE: 20211021
